FAERS Safety Report 6744377-0 (Version None)
Quarter: 2010Q2

REPORT INFORMATION
  Report Type: 
  Country: None (occurrence: None)
  Receive Date: 20100527
  Receipt Date: 20100518
  Transmission Date: 20101027
  Serious: Yes (Other)
  Sender: FDA-Public Use
  Company Number: BR-PFIZER INC-2010062311

PATIENT
  Age: 67 Year
  Sex: Female
  Weight: 64 kg

DRUGS (7)
  1. GABAPENTIN [Suspect]
     Indication: NEUROPATHY PERIPHERAL
     Dosage: 300 MG, 2X/DAY
     Route: 048
     Dates: start: 20100501
  2. PREDNISONE [Concomitant]
     Indication: RHEUMATOID ARTHRITIS
     Dosage: 5 MG, UNK
  3. ARAVA [Concomitant]
     Indication: RHEUMATOID ARTHRITIS
     Dosage: 20 MG, UNK
  4. DIOVAN [Concomitant]
     Indication: HYPERTENSION
     Dosage: UNK
  5. INDAPAMIDE [Concomitant]
     Indication: HYPERTENSION
     Dosage: UNK
  6. OMEPRAZOLE [Concomitant]
     Indication: GASTRIC DISORDER
  7. CENTRUM [Concomitant]
     Indication: VITAMIN SUPPLEMENTATION
     Dosage: UNK

REACTIONS (3)
  - DRY MOUTH [None]
  - GINGIVAL INJURY [None]
  - SALIVA ALTERED [None]
